FAERS Safety Report 4332822-X (Version None)
Quarter: 2004Q2

REPORT INFORMATION
  Report Type: 
  Country: None (occurrence: None)
  Receive Date: 20040405
  Receipt Date: 20040405
  Transmission Date: 20050107
  Serious: Yes (Hospitalization, Other)
  Sender: FDA-Public Use
  Company Number: None

PATIENT
  Age: 45 Year
  Sex: Male
  Weight: 92.9874 kg

DRUGS (6)
  1. SIROLIMUS -ECUTING STENT [Suspect]
  2. ASPIRIN [Concomitant]
  3. TOPROC [Concomitant]
  4. PLAVIX [Concomitant]
  5. LIPITOR [Concomitant]
  6. AVAPRO [Concomitant]

REACTIONS (5)
  - ARTHRALGIA [None]
  - MEDICAL DEVICE COMPLICATION [None]
  - OESOPHAGEAL PAIN [None]
  - RASH [None]
  - URTICARIA [None]
